FAERS Safety Report 6758050-6 (Version None)
Quarter: 2010Q2

REPORT INFORMATION
  Report Type: 
  Country: None (occurrence: None)
  Receive Date: 20100607
  Receipt Date: 20100601
  Transmission Date: 20101027
  Serious: Yes (Life-Threatening)
  Sender: FDA-Public Use
  Company Number: DE-JNJFOC-20100601797

PATIENT
  Age: 60 Year
  Sex: Female

DRUGS (1)
  1. FENTANYL [Suspect]
     Indication: DRUG USE FOR UNKNOWN INDICATION
     Route: 062

REACTIONS (10)
  - COMA [None]
  - DISTURBANCE IN ATTENTION [None]
  - DRUG DISPENSING ERROR [None]
  - DRUG PRESCRIBING ERROR [None]
  - FALL [None]
  - FATIGUE [None]
  - LETHARGY [None]
  - MYDRIASIS [None]
  - OVERDOSE [None]
  - RESPIRATORY RATE DECREASED [None]
